FAERS Safety Report 11037783 (Version 3)
Quarter: 2015Q3

REPORT INFORMATION
  Report Type: Spontaneous
  Country: US (occurrence: US)
  Receive Date: 20150416
  Receipt Date: 20150703
  Transmission Date: 20151125
  Serious: Yes (Life-Threatening, Hospitalization, Other)
  Sender: FDA-Public Use
  Company Number: US-ASTRAZENECA-2015SE34270

PATIENT
  Age: 23668 Day
  Sex: Male
  Weight: 45.4 kg

DRUGS (4)
  1. COMBIVENT [Concomitant]
     Active Substance: ALBUTEROL SULFATE\IPRATROPIUM BROMIDE
     Indication: PROPHYLAXIS
     Dosage: 120, THREE TIMES A DAY
     Route: 055
     Dates: start: 2007
  2. MORPHINE [Concomitant]
     Active Substance: MORPHINE
     Indication: LUNG DISORDER
     Dosage: 100, THREE TIMES DAILY, BUT TAKES IT TWICE DAILY
     Route: 065
     Dates: start: 201411
  3. SYMBICORT [Suspect]
     Active Substance: BUDESONIDE\FORMOTEROL FUMARATE DIHYDRATE
     Indication: CHRONIC OBSTRUCTIVE PULMONARY DISEASE
     Dosage: 160/4.5 MCG TWO PUFFS TWO TIMES A DAY
     Route: 055
     Dates: start: 2002
  4. NEBULIZER [Concomitant]
     Active Substance: DEVICE
     Dosage: 140, 4 TO 6 TIMES A DAY
     Route: 055
     Dates: start: 2008

REACTIONS (9)
  - Device difficult to use [Unknown]
  - Off label use [Unknown]
  - Weight decreased [Unknown]
  - Drug dose omission [Unknown]
  - Circumstance or information capable of leading to medication error [Unknown]
  - Apparent death [Unknown]
  - Dyspnoea [Unknown]
  - Intentional device misuse [Unknown]
  - Intentional product misuse [Unknown]

NARRATIVE: CASE EVENT DATE: 20140522
